FAERS Safety Report 10833833 (Version 1)
Quarter: 2015Q1

REPORT INFORMATION
  Report Type: Report from Study
  Country: US (occurrence: US)
  Receive Date: 20150219
  Receipt Date: 20150219
  Transmission Date: 20150721
  Serious: No
  Sender: FDA-Public Use
  Company Number: US-ABBVIE-14P-163-1209294-00

PATIENT
  Sex: Female

DRUGS (8)
  1. UNNAMED SOLUTION [Concomitant]
     Indication: PSORIASIS
     Route: 061
  2. UNNAMED MEDICATION [Concomitant]
     Active Substance: UNSPECIFIED INGREDIENT
     Indication: HYPERTENSION
  3. HUMIRA [Suspect]
     Active Substance: ADALIMUMAB
     Indication: PSORIASIS
     Dosage: DAY ONE/ABOUT A MONTH AGO
     Dates: start: 201402, end: 201402
  4. FOLIC ACID. [Concomitant]
     Active Substance: FOLIC ACID
     Indication: PRODUCT USED FOR UNKNOWN INDICATION
     Dates: start: 201405, end: 201406
  5. HUMIRA [Suspect]
     Active Substance: ADALIMUMAB
     Dosage: DAY 22
  6. HUMIRA [Suspect]
     Active Substance: ADALIMUMAB
     Dosage: DAY EIGHT/ONE WEEK AFTER 80 MG DOSE
     Dates: start: 2014
  7. UNKNOWN HIGH BLOOD PRESSURE MEDICATION [Concomitant]
     Indication: PRODUCT USED FOR UNKNOWN INDICATION
  8. CLOBETASOL [Concomitant]
     Active Substance: CLOBETASOL
     Indication: PSORIASIS
     Route: 061

REACTIONS (3)
  - Device issue [Unknown]
  - Psoriasis [Not Recovered/Not Resolved]
  - Drug ineffective [Not Recovered/Not Resolved]

NARRATIVE: CASE EVENT DATE: 2014
